FAERS Safety Report 14277248 (Version 4)
Quarter: 2019Q2

REPORT INFORMATION
  Report Type: Spontaneous
  Country: US (occurrence: US)
  Receive Date: 20171212
  Receipt Date: 20190409
  Transmission Date: 20190711
  Serious: Yes (Other)
  Sender: FDA-Public Use
  Company Number: US-PFIZER INC-2017526698

PATIENT
  Age: 63 Year
  Sex: Female
  Weight: 57 kg

DRUGS (4)
  1. DIAZEPAM. [Concomitant]
     Active Substance: DIAZEPAM
     Indication: NEUROPATHY PERIPHERAL
     Dosage: 10 MG, 3X/DAY(10MG TABLET UP TO THREE TIMES A DAY AS NEEDED)
  2. ATROPINE SULFATE/DIPHENOXYLATE HYDROCHLORIDE [Suspect]
     Active Substance: ATROPINE SULFATE\DIPHENOXYLATE HYDROCHLORIDE
     Indication: DIARRHOEA
     Dosage: UP TO 3 TABLETS AT A TIME MORE THAN ONCE A DAY
     Dates: end: 20171122
  3. ATROPINE SULFATE/DIPHENOXYLATE HYDROCHLORIDE [Suspect]
     Active Substance: ATROPINE SULFATE\DIPHENOXYLATE HYDROCHLORIDE
     Dosage: UNK, AS NEEDED
     Route: 048
     Dates: end: 201712
  4. ZOLOFT [Concomitant]
     Active Substance: SERTRALINE HYDROCHLORIDE
     Indication: DEPRESSION
     Dosage: UNK MG, UNK (100MG TWO AND A HALF TABLETS ONCE A DAY BY MOUTH)
     Route: 048

REACTIONS (32)
  - Dizziness [Recovering/Resolving]
  - Sleep disorder [Not Recovered/Not Resolved]
  - Musculoskeletal discomfort [Not Recovered/Not Resolved]
  - Spinal fracture [Not Recovered/Not Resolved]
  - Balance disorder [Recovering/Resolving]
  - Skin disorder [Not Recovered/Not Resolved]
  - Memory impairment [Unknown]
  - Anxiety [Unknown]
  - Pain in extremity [Not Recovered/Not Resolved]
  - Loss of consciousness [Recovered/Resolved with Sequelae]
  - Lack of spontaneous speech [Unknown]
  - Stress [Unknown]
  - Drug ineffective [Recovered/Resolved with Sequelae]
  - Recalled product administered [Unknown]
  - Constipation [Unknown]
  - Osteoporosis [Unknown]
  - Paraesthesia [Not Recovered/Not Resolved]
  - Condition aggravated [Unknown]
  - Cerebrovascular accident [Recovered/Resolved with Sequelae]
  - Oral infection [Recovered/Resolved]
  - Loss of personal independence in daily activities [Unknown]
  - Amnesia [Not Recovered/Not Resolved]
  - Fracture [Unknown]
  - Chest injury [Not Recovered/Not Resolved]
  - Syncope [Recovered/Resolved]
  - Fall [Recovering/Resolving]
  - Logorrhoea [Recovered/Resolved]
  - Tooth loss [Unknown]
  - Gallbladder disorder [Unknown]
  - Fatigue [Unknown]
  - Weight decreased [Unknown]
  - Skin haemorrhage [Unknown]

NARRATIVE: CASE EVENT DATE: 2016
